FAERS Safety Report 15582887 (Version 1)
Quarter: 2018Q4

REPORT INFORMATION
  Report Type: Spontaneous
  Country: US (occurrence: US)
  Receive Date: 20181103
  Receipt Date: 20181103
  Transmission Date: 20190205
  Serious: No
  Sender: FDA-Public Use
  Company Number: PHEH2018US045620

PATIENT
  Sex: Female

DRUGS (2)
  1. RIVASTIGMINE. [Suspect]
     Active Substance: RIVASTIGMINE
     Indication: DEMENTIA
     Route: 065
  2. RIVASTIGMINE SANDOZ [Suspect]
     Active Substance: RIVASTIGMINE
     Indication: DEMENTIA
     Route: 065

REACTIONS (2)
  - Application site erythema [Unknown]
  - Application site pruritus [Unknown]
